FAERS Safety Report 4263649-5 (Version None)
Quarter: 2004Q1

REPORT INFORMATION
  Report Type: 
  Country: None (occurrence: None)
  Receive Date: 20040102
  Receipt Date: 20031215
  Transmission Date: 20041129
  Serious: Yes (Hospitalization)
  Sender: FDA-Public Use
  Company Number: USA031254610

PATIENT
  Age: 77 Year
  Sex: Female

DRUGS (1)
  1. HUMULIN N [Suspect]
     Indication: DIABETES MELLITUS
     Dosage: 60 U/2 DAY

REACTIONS (3)
  - ABNORMAL BEHAVIOUR [None]
  - OEDEMA PERIPHERAL [None]
  - WRIST FRACTURE [None]
